FAERS Safety Report 10735543 (Version 1)
Quarter: 2015Q1

REPORT INFORMATION
  Report Type: Spontaneous
  Country: US (occurrence: US)
  Receive Date: 20150126
  Receipt Date: 20150126
  Transmission Date: 20150721
  Serious: Yes (Death)
  Sender: FDA-Public Use
  Company Number: US-BAUSCH-BL-2015-001079

PATIENT
  Age: 65 Year

DRUGS (1)
  1. MACUGEN [Suspect]
     Active Substance: PEGAPTANIB SODIUM
     Indication: DIABETIC RETINAL OEDEMA

REACTIONS (1)
  - Death [Fatal]

NARRATIVE: CASE EVENT DATE: 20150110
